FAERS Safety Report 9233427 (Version 1)
Quarter: 2013Q2

REPORT INFORMATION
  Report Type: Spontaneous
  Country: US (occurrence: US)
  Receive Date: 20130416
  Receipt Date: 20130416
  Transmission Date: 20140414
  Serious: No
  Sender: FDA-Public Use
  Company Number: US-BANPHARM-20131069

PATIENT
  Sex: Female

DRUGS (3)
  1. ALEVE LIQUID GELS 220MG [Suspect]
     Route: 048
  2. NEXIUM [Concomitant]
  3. BLOOD PRESSURE MEDICATIONS [Concomitant]
     Indication: HYPERTENSION

REACTIONS (3)
  - Rash pruritic [Recovering/Resolving]
  - Photosensitivity reaction [Recovering/Resolving]
  - Acne [Recovering/Resolving]
